FAERS Safety Report 10996529 (Version 1)
Quarter: 2015Q2

REPORT INFORMATION
  Report Type: Spontaneous
  Country: US (occurrence: None)
  Receive Date: 20150407
  Receipt Date: 20150407
  Transmission Date: 20150821
  Serious: No
  Sender: FDA-Public Use
  Company Number: None

PATIENT
  Age: 65 Year
  Sex: Female
  Weight: 72.12 kg

DRUGS (6)
  1. PRAVASTATIN [Concomitant]
     Active Substance: PRAVASTATIN\PRAVASTATIN SODIUM
  2. PROLIA [Suspect]
     Active Substance: DENOSUMAB
     Indication: OSTEOPOROSIS
     Dosage: INJECTION SHOT  2 TIMES A YEAR
  3. RAMIPIAL [Concomitant]
  4. D3 [Concomitant]
     Active Substance: 25-HYDROXYCHOLECALCIFEROL, 5-TRANS-
  5. CALTRATE 600-D3 [Concomitant]
  6. BAYER [Concomitant]
     Active Substance: ASPIRIN

REACTIONS (10)
  - Insomnia [None]
  - Euphoric mood [None]
  - Intestinal obstruction [None]
  - Psychomotor hyperactivity [None]
  - Diarrhoea [None]
  - Malaise [None]
  - Irritable bowel syndrome [None]
  - Cystitis [None]
  - Chondropathy [None]
  - Urinary retention [None]

NARRATIVE: CASE EVENT DATE: 20141119
